FAERS Safety Report 7834112-7 (Version None)
Quarter: 2011Q4

REPORT INFORMATION
  Report Type: 
  Country: None (occurrence: None)
  Receive Date: 20111024
  Receipt Date: 20111010
  Transmission Date: 20120403
  Serious: Yes (Hospitalization)
  Sender: FDA-Public Use
  Company Number: PHHY2011NL89507

PATIENT
  Sex: Male

DRUGS (3)
  1. SANDOSTATIN LAR [Suspect]
     Indication: ACROMEGALY
     Dosage: 30 MG, UNK
     Dates: start: 20100519
  2. ANTIHYPERTENSIVE DRUGS [Concomitant]
  3. DOSTINEX [Concomitant]

REACTIONS (4)
  - PANCREATIC DISORDER [None]
  - LOSS OF CONSCIOUSNESS [None]
  - JAUNDICE [None]
  - VOMITING [None]
